FAERS Safety Report 11928571 (Version 1)
Quarter: 2016Q1

REPORT INFORMATION
  Report Type: Spontaneous
  Country: FR (occurrence: FR)
  Receive Date: 20160119
  Receipt Date: 20160119
  Transmission Date: 20160526
  Serious: Yes (Hospitalization, Other)
  Sender: FDA-Public Use
  Company Number: FR-PFIZER INC-2016019579

PATIENT
  Age: 11 Year
  Sex: Male

DRUGS (3)
  1. GENOTONORM [Suspect]
     Active Substance: SOMATROPIN
     Dosage: 0.9 MG, 1X/DAY
     Route: 058
     Dates: start: 201404
  2. GENOTONORM [Suspect]
     Active Substance: SOMATROPIN
     Dosage: UNK
     Route: 058
     Dates: start: 200901, end: 201312
  3. GENOTONORM [Suspect]
     Active Substance: SOMATROPIN
     Dosage: 1 MG, 1X/DAY
     Route: 058
     Dates: end: 201410

REACTIONS (3)
  - Brain neoplasm [Not Recovered/Not Resolved]
  - Gastrooesophageal reflux disease [Unknown]
  - Drug ineffective [Unknown]

NARRATIVE: CASE EVENT DATE: 201410
